FAERS Safety Report 8130932-2 (Version None)
Quarter: 2012Q1

REPORT INFORMATION
  Report Type: 
  Country: None (occurrence: None)
  Receive Date: 20120213
  Receipt Date: 20120208
  Transmission Date: 20120608
  Serious: Yes (Other)
  Sender: FDA-Public Use
  Company Number: US-PFIZER INC-2007002904

PATIENT
  Sex: Female
  Weight: 65.76 kg

DRUGS (10)
  1. CHANTIX [Suspect]
     Dosage: 1 MG, 2X/DAY
     Dates: start: 20100101
  2. KLONOPIN [Concomitant]
     Indication: SLEEP DISORDER
     Dosage: 1 MG, DAILY
  3. CHANTIX [Suspect]
     Dosage: 0.5 MG, 1X/DAY
     Route: 048
     Dates: start: 20100621, end: 20100101
  4. BYSTOLIC [Concomitant]
     Indication: CARDIAC DISORDER
     Dosage: 5 MG, DAILY
  5. BYSTOLIC [Concomitant]
     Indication: HYPERTENSION
  6. CITALOPRAM [Concomitant]
     Indication: DEPRESSION
     Dosage: 10 MG, DAILY
  7. VYTORIN [Concomitant]
     Indication: BLOOD CHOLESTEROL
     Dosage: UNK
  8. CHANTIX [Suspect]
     Dosage: UNK
     Route: 048
     Dates: start: 20100101
  9. CHANTIX [Suspect]
     Indication: SMOKING CESSATION THERAPY
     Dosage: UNK
     Dates: start: 20061201
  10. CRESTOR [Concomitant]
     Indication: BLOOD CHOLESTEROL INCREASED
     Dosage: 20 MG, DAILY
     Route: 048

REACTIONS (11)
  - DRUG INEFFECTIVE [None]
  - AGITATION [None]
  - HYPERHIDROSIS [None]
  - DEPRESSED MOOD [None]
  - HEADACHE [None]
  - ABNORMAL DREAMS [None]
  - ANXIETY [None]
  - NAUSEA [None]
  - ABDOMINAL DISCOMFORT [None]
  - HOSTILITY [None]
  - ABNORMAL BEHAVIOUR [None]
